FAERS Safety Report 4576486-9 (Version None)
Quarter: 2005Q1

REPORT INFORMATION
  Report Type: 
  Country: None (occurrence: None)
  Receive Date: 20050119
  Receipt Date: 20040405
  Transmission Date: 20050727
  Serious: Yes (Hospitalization)
  Sender: FDA-Public Use
  Company Number: A03200401085

PATIENT
  Age: 82 Year
  Sex: Male
  Weight: 95.2554 kg

DRUGS (3)
  1. PLAVIX [Suspect]
     Indication: STENT PLACEMENT
     Dosage: 75 MG QD - ORAL
     Route: 048
     Dates: start: 20031201
  2. ASPIRIN [Suspect]
     Indication: STENT PLACEMENT
     Dosage: 325 MG QD - ORAL
     Route: 048
     Dates: start: 20031201
  3. ATORVASTATIN CALCIUM [Concomitant]

REACTIONS (4)
  - ANGINA PECTORIS [None]
  - CONTUSION [None]
  - DYSPNOEA EXERTIONAL [None]
  - HAEMORRHAGIC DIATHESIS [None]
